FAERS Safety Report 15130079 (Version 1)
Quarter: 2018Q3

REPORT INFORMATION
  Report Type: Report from Study
  Country: BR (occurrence: BR)
  Receive Date: 20180711
  Receipt Date: 20180711
  Transmission Date: 20181010
  Serious: Yes (Other)
  Sender: FDA-Public Use
  Company Number: PHHY2018BR037924

PATIENT
  Sex: Male
  Weight: 87 kg

DRUGS (3)
  1. RITALIN LA [Suspect]
     Active Substance: METHYLPHENIDATE HYDROCHLORIDE
     Indication: PRODUCT USED FOR UNKNOWN INDICATION
     Dosage: 40 MG, QD (IN THE MORNING)
     Route: 048
     Dates: start: 20180602, end: 201806
  2. LORAX [Concomitant]
     Active Substance: LORAZEPAM
     Indication: SLEEP DISORDER
  3. LORAX [Concomitant]
     Active Substance: LORAZEPAM
     Indication: ANXIETY
     Dosage: QHS
     Route: 048

REACTIONS (6)
  - Agitation [Recovering/Resolving]
  - Malaise [Recovering/Resolving]
  - Nervousness [Recovering/Resolving]
  - Discomfort [Recovering/Resolving]
  - Drug dependence [Unknown]
  - Paranoia [Recovering/Resolving]
